FAERS Safety Report 5304626-2 (Version None)
Quarter: 2007Q2

REPORT INFORMATION
  Report Type: 
  Country: None (occurrence: None)
  Receive Date: 20070423
  Receipt Date: 20070413
  Transmission Date: 20071010
  Serious: Yes (Hospitalization)
  Sender: FDA-Public Use
  Company Number: CH-GLAXOSMITHKLINE-B0466849A

PATIENT
  Age: 80 Year
  Sex: Female
  Weight: 73 kg

DRUGS (12)
  1. ALKERAN [Suspect]
     Indication: LIPOSARCOMA
     Dosage: 85MG SINGLE DOSE
     Route: 051
     Dates: start: 20070307, end: 20070307
  2. UNKNOWN MEDICATION [Suspect]
     Indication: LIPOSARCOMA
     Dosage: 4MG SINGLE DOSE
     Route: 051
     Dates: start: 20070307, end: 20070307
  3. METAMIZOLE SODIUM [Suspect]
     Dosage: 1G AS REQUIRED
     Route: 048
     Dates: start: 20070309, end: 20070314
  4. CLEXANE [Concomitant]
     Dosage: 40MG PER DAY
     Route: 058
     Dates: start: 20070307
  5. DAFALGAN [Concomitant]
     Dosage: 1G FOUR TIMES PER DAY
     Route: 048
     Dates: start: 20070309
  6. ASCORBIC ACID + FERROUS FUMARATE [Concomitant]
     Indication: IRON DEFICIENCY
     Route: 048
     Dates: start: 20070309
  7. FERROUS SULFATE TAB [Concomitant]
     Indication: IRON DEFICIENCY
     Route: 048
     Dates: start: 20070309
  8. TEMESTA [Concomitant]
     Indication: ANXIETY DISORDER
     Dosage: 1MG AS REQUIRED
     Route: 048
     Dates: start: 20070309
  9. NEXIUM [Concomitant]
     Dosage: 40MG PER DAY
     Route: 048
     Dates: start: 20070309
  10. PRAVASTATIN SODIUM [Concomitant]
     Dosage: 20MG PER DAY
     Route: 048
     Dates: start: 20070315
  11. TRAMADOL HCL [Concomitant]
     Route: 048
     Dates: start: 20070315, end: 20070322
  12. CETIRIZINE HCL [Concomitant]
     Indication: RASH
     Dosage: 5MG PER DAY
     Route: 048
     Dates: start: 20070317, end: 20070322

REACTIONS (3)
  - AGRANULOCYTOSIS [None]
  - LEUKOPENIA [None]
  - PYREXIA [None]
